FAERS Safety Report 25396084 (Version 2)
Quarter: 2025Q2

REPORT INFORMATION
  Report Type: Report from Study
  Country: US (occurrence: US)
  Receive Date: 20250604
  Receipt Date: 20250630
  Transmission Date: 20250716
  Serious: Yes (Hospitalization, Other)
  Sender: TAKEDA
  Company Number: US-TAKEDA-2023TUS112040

PATIENT
  Sex: Female

DRUGS (19)
  1. PONATINIB [Suspect]
     Active Substance: PONATINIB
     Indication: Philadelphia positive acute lymphocytic leukaemia
     Dosage: 45 MILLIGRAM, QD
  2. PONATINIB [Suspect]
     Active Substance: PONATINIB
     Indication: Acute lymphocytic leukaemia
  3. PONATINIB [Suspect]
     Active Substance: PONATINIB
     Dosage: 30 MILLIGRAM, QD
  4. PONATINIB [Suspect]
     Active Substance: PONATINIB
     Dosage: 45 MILLIGRAM, QD
  5. PONATINIB [Suspect]
     Active Substance: PONATINIB
     Dosage: 30 MILLIGRAM, QD
  6. PONATINIB [Suspect]
     Active Substance: PONATINIB
     Dosage: 30 MILLIGRAM, QD
  7. BLINCYTO [Suspect]
     Active Substance: BLINATUMOMAB
     Indication: Product used for unknown indication
  8. CIPRO [Concomitant]
     Active Substance: CIPROFLOXACIN HYDROCHLORIDE
  9. ACYCLOVIR [Concomitant]
     Active Substance: ACYCLOVIR
  10. HUMALOG [Concomitant]
     Active Substance: INSULIN LISPRO
  11. ALLOPURINOL [Concomitant]
     Active Substance: ALLOPURINOL
  12. CEFDINIR [Concomitant]
     Active Substance: CEFDINIR
  13. MECLIZINE [Concomitant]
     Active Substance: MECLIZINE HYDROCHLORIDE
  14. Vitamin k2 + d3 [Concomitant]
  15. B12 [Concomitant]
  16. FARXIGA [Concomitant]
     Active Substance: DAPAGLIFLOZIN PROPANEDIOL
  17. METOPROLOL TARTRATE [Concomitant]
     Active Substance: METOPROLOL TARTRATE
  18. ELIQUIS [Concomitant]
     Active Substance: APIXABAN
  19. OMEGA 3 [Concomitant]
     Active Substance: CAPSAICIN

REACTIONS (11)
  - Acute lymphocytic leukaemia recurrent [Unknown]
  - Rash [Unknown]
  - Atrial fibrillation [Unknown]
  - Product dose omission issue [Unknown]
  - Back pain [Unknown]
  - Liver disorder [Unknown]
  - Lung disorder [Unknown]
  - Palpitations [Unknown]
  - Pyrexia [Unknown]
  - Blood pressure increased [Unknown]
  - Drug ineffective [Unknown]
